FAERS Safety Report 10203611 (Version 1)
Quarter: 2014Q2

REPORT INFORMATION
  Report Type: Report from Study
  Country: CA (occurrence: None)
  Receive Date: 20140523
  Receipt Date: 20140523
  Transmission Date: 20141212
  Serious: Yes (Hospitalization)
  Sender: FDA-Public Use
  Company Number: AXC-2014-000322

PATIENT
  Age: 26 Year
  Sex: Female

DRUGS (8)
  1. BENTYLOL [Suspect]
     Indication: PRODUCT USED FOR UNKNOWN INDICATION
  2. BENADRYL [Suspect]
     Indication: PRODUCT USED FOR UNKNOWN INDICATION
     Route: 048
  3. MEZAVANT [Suspect]
     Indication: PRODUCT USED FOR UNKNOWN INDICATION
  4. REMICADE [Suspect]
     Indication: PRODUCT USED FOR UNKNOWN INDICATION
     Route: 042
  5. VALTREX [Suspect]
     Indication: PRODUCT USED FOR UNKNOWN INDICATION
  6. ZANTAC [Suspect]
     Indication: PRODUCT USED FOR UNKNOWN INDICATION
  7. FOLIC ACID (FOLIC ACID) [Concomitant]
  8. MATERNA /02266601 (ASCORBIC AACID, BIOTIN, CALCIUM, CALCIUM PANTOTHENATE, CHROMIUM, COPPER, CYANOCOBALMIN, ERGOCALCIFEROL, FOLIC ACID, IODINE, IRON, MAGNESIUM, MANGANESE, MOLYDENUM, NICOTINAMIDE, PYRIDOXINE HYDROCHLORIDE, RETINOL, RIBOFLAVIN, THIAMINE HY [Concomitant]

REACTIONS (2)
  - Abortion spontaneous [None]
  - Exposure during pregnancy [None]
